FAERS Safety Report 8295996-4 (Version None)
Quarter: 2012Q1

REPORT INFORMATION
  Report Type: 
  Country: None (occurrence: None)
  Receive Date: 20120322
  Receipt Date: 20111201
  Transmission Date: 20120608
  Serious: Yes (Hospitalization)
  Sender: FDA-Public Use
  Company Number: UTC-010898

PATIENT
  Age: 73 Year
  Sex: Female
  Weight: 122.7 kg

DRUGS (2)
  1. TYVASO [Suspect]
     Indication: PULMONARY ARTERIAL HYPERTENSION
     Dosage: 18-54 MICROGRAMS (4 IN 1 D), INHALATION
     Route: 055
     Dates: start: 20100915
  2. DIURETICS (DIURETICS) (UNKNOWN) [Concomitant]

REACTIONS (4)
  - PULMONARY HYPERTENSION [None]
  - ATRIAL FIBRILLATION [None]
  - CONDITION AGGRAVATED [None]
  - CARDIAC FAILURE CONGESTIVE [None]
